FAERS Safety Report 8614506-2 (Version None)
Quarter: 2012Q3

REPORT INFORMATION
  Report Type: 
  Country: None (occurrence: None)
  Receive Date: 20120823
  Receipt Date: 20120816
  Transmission Date: 20120928
  Serious: Yes (Hospitalization, Other)
  Sender: FDA-Public Use
  Company Number: PHHY2010JP88350

PATIENT
  Sex: Male
  Weight: 44 kg

DRUGS (16)
  1. EXJADE [Suspect]
     Dosage: 875 MG, DAILY
     Route: 048
     Dates: start: 20091007
  2. EXJADE [Suspect]
     Dosage: 20 MG/KG, UNK
     Route: 048
     Dates: end: 20100701
  3. LASIX [Concomitant]
     Dosage: 20 MG, UNK
     Route: 048
     Dates: start: 20090624, end: 20091224
  4. PRIMPERAN TAB [Concomitant]
     Dosage: 3 DF, UNK
     Route: 048
     Dates: start: 20090812, end: 20090911
  5. SITAFLOXACIN HYDRATE [Concomitant]
     Dosage: 100 MG, UNK
     Route: 048
     Dates: start: 20090916, end: 20090928
  6. PHENOBARBITAL TAB [Concomitant]
     Dosage: UNK UKN, UNK
     Route: 048
     Dates: start: 20091001, end: 20091007
  7. EXJADE [Suspect]
     Indication: IRON OVERLOAD
     Dosage: 875 MG, DAILY
     Route: 048
     Dates: start: 20090624, end: 20090722
  8. EXJADE [Suspect]
     Indication: MYELOFIBROSIS
     Dosage: 875 MG, DAILY
     Route: 048
     Dates: start: 20090729, end: 20090812
  9. PREDNISOLONE [Concomitant]
     Dosage: 10 MG, UNK
     Route: 048
     Dates: start: 20090624, end: 20091224
  10. URIEF [Concomitant]
     Dosage: 8 DF, UNK
     Route: 048
     Dates: start: 20090924, end: 20091007
  11. MAGNESIUM OXIDE [Concomitant]
     Dosage: 3 G, UNK
     Route: 048
     Dates: start: 20090708, end: 20090911
  12. PHENYTOIN SODIUM CAP [Concomitant]
     Dosage: 150 MG, UNK
     Route: 048
     Dates: start: 20091001, end: 20091007
  13. LANSOPRAZOLE [Concomitant]
     Dosage: 15 MG, UNK
     Route: 048
     Dates: start: 20091001, end: 20091224
  14. EXJADE [Suspect]
     Dosage: 20 MG/KG, UNK
     Route: 048
  15. MUCOSTA [Concomitant]
     Dosage: 300 MG, UNK
     Route: 048
     Dates: start: 20090624, end: 20090911
  16. LASIX [Concomitant]
     Dosage: 20 MG, UNK
     Route: 048

REACTIONS (6)
  - WHITE BLOOD CELL COUNT INCREASED [None]
  - DIARRHOEA [None]
  - URINARY TRACT INFECTION [None]
  - PNEUMONIA [None]
  - HYPOTENSION [None]
  - NAUSEA [None]
